FAERS Safety Report 9234097 (Version 1)
Quarter: 2013Q1

REPORT INFORMATION
  Report Type: Spontaneous
  Country: US (occurrence: None)
  Receive Date: 20121031
  Receipt Date: 20121031
  Transmission Date: 20140127
  Serious: No
  Sender: FDA-Public Use
  Company Number: PHEH2012US012913

PATIENT
  Age: 33 Year
  Sex: Female

DRUGS (5)
  1. GILENYA [Suspect]
     Indication: MULTIPLE SCLEROSIS
     Route: 048
     Dates: start: 201111
  2. TOPIRAMATE ( TOPIRAMATE) [Concomitant]
  3. AMITIZA (LUBIPROSTONE) [Concomitant]
  4. FLEXERIL (CYCLOBENZAPRINE HYDROCHLORIDE) [Concomitant]
  5. TOPAMAX (TOPIRAMATE) [Concomitant]

REACTIONS (4)
  - Vertigo [None]
  - Ear pain [None]
  - General physical health deterioration [None]
  - Alopecia [None]
